FAERS Safety Report 5449236-1 (Version None)
Quarter: 2007Q3

REPORT INFORMATION
  Report Type: 
  Country: None (occurrence: None)
  Receive Date: 20070911
  Receipt Date: 20070910
  Transmission Date: 20080115
  Serious: Yes (Other)
  Sender: FDA-Public Use
  Company Number: US-SHR-US-2007-022282

PATIENT
  Age: 56 Year
  Sex: Female
  Weight: 54 kg

DRUGS (2)
  1. MENOSTAR [Suspect]
     Dosage: 14 A?G/DAY, CONT
     Route: 062
     Dates: start: 20050609, end: 20050906
  2. SALICYLATES [Concomitant]
     Dosage: 81 MG, UNK
     Dates: start: 20050201, end: 20050401

REACTIONS (4)
  - ABDOMINAL PAIN [None]
  - HYPOAESTHESIA [None]
  - NON-HODGKIN'S LYMPHOMA [None]
  - UTERINE HAEMORRHAGE [None]
